FAERS Safety Report 6161240-7 (Version None)
Quarter: 2009Q2

REPORT INFORMATION
  Report Type: 
  Country: None (occurrence: None)
  Receive Date: 20090420
  Receipt Date: 20090420
  Transmission Date: 20091009
  Serious: Yes (Other)
  Sender: FDA-Public Use
  Company Number: None

PATIENT
  Age: 30 Year
  Sex: Male
  Weight: 124.7392 kg

DRUGS (2)
  1. PANTOPRAZOLE SODIUM [Suspect]
     Indication: GASTRITIS
     Dosage: 40 MG BID
  2. PANTOPRAZOLE SODIUM [Suspect]
     Indication: GASTROOESOPHAGEAL REFLUX DISEASE
     Dosage: 40 MG BID

REACTIONS (3)
  - NAUSEA [None]
  - PAIN [None]
  - PRODUCT SUBSTITUTION ISSUE [None]
